FAERS Safety Report 24706877 (Version 1)
Quarter: 2024Q4

REPORT INFORMATION
  Report Type: Spontaneous
  Country: US (occurrence: US)
  Receive Date: 20241206
  Receipt Date: 20241206
  Transmission Date: 20250115
  Serious: Yes (Other)
  Sender: Alora Pharma
  Company Number: US-ACELLA PHARMACEUTICALS, LLC-2024ALO00562

PATIENT

DRUGS (1)
  1. NP THYROID [Suspect]
     Active Substance: LEVOTHYROXINE\LIOTHYRONINE

REACTIONS (9)
  - Chest discomfort [Unknown]
  - Mouth swelling [Unknown]
  - Swollen tongue [Unknown]
  - Tongue discomfort [Unknown]
  - Oral discomfort [Unknown]
  - Tremor [Unknown]
  - Muscle spasms [Unknown]
  - Food allergy [Unknown]
  - Product odour abnormal [Unknown]

NARRATIVE: CASE EVENT DATE: 20240101
